FAERS Safety Report 4898851-2 (Version None)
Quarter: 2006Q1

REPORT INFORMATION
  Report Type: 
  Country: None (occurrence: None)
  Receive Date: 20060202
  Receipt Date: 20060130
  Transmission Date: 20060701
  Serious: Yes (Other)
  Sender: FDA-Public Use
  Company Number: NL-GLAXOSMITHKLINE-B0408689A

PATIENT
  Age: 68 Year
  Sex: Male

DRUGS (2)
  1. FLUTICASONE PROPIONATE + SALMETEROL XINAFOATE [Suspect]
     Indication: CHRONIC OBSTRUCTIVE PULMONARY DISEASE
     Route: 055
     Dates: start: 20020101
  2. ATROVENT [Concomitant]
     Dosage: 20MCG SEE DOSAGE TEXT
     Route: 055
     Dates: start: 19980101

REACTIONS (3)
  - CATARACT [None]
  - GLAUCOMA [None]
  - MYALGIA [None]
